FAERS Safety Report 22810355 (Version 6)
Quarter: 2024Q1

REPORT INFORMATION
  Report Type: Spontaneous
  Country: US (occurrence: US)
  Receive Date: 20230810
  Receipt Date: 20240129
  Transmission Date: 20240410
  Serious: No
  Sender: FDA-Public Use
  Company Number: US-PFIZER INC-PV202300108748

PATIENT
  Age: 62 Year
  Sex: Female

DRUGS (4)
  1. CIBINQO [Suspect]
     Active Substance: ABROCITINIB
     Indication: Dermatitis atopic
     Dosage: 100 MG, DAILY
     Route: 048
  2. CIBINQO [Suspect]
     Active Substance: ABROCITINIB
     Indication: Psoriasis
  3. CIBINQO [Suspect]
     Active Substance: ABROCITINIB
     Indication: Pruritus
  4. CIBINQO [Suspect]
     Active Substance: ABROCITINIB
     Indication: Rash

REACTIONS (2)
  - Arthralgia [Not Recovered/Not Resolved]
  - Malaise [Unknown]
